FAERS Safety Report 21895789 (Version 1)
Quarter: 2023Q1

REPORT INFORMATION
  Report Type: Spontaneous
  Country: US (occurrence: US)
  Receive Date: 20230123
  Receipt Date: 20230123
  Transmission Date: 20230417
  Serious: Yes (Death, Hospitalization, Other)
  Sender: FDA-Public Use
  Company Number: US-APOTEX-2023AP002264

PATIENT
  Age: 48 Year
  Sex: Female

DRUGS (1)
  1. AMLODIPINE [Suspect]
     Active Substance: AMLODIPINE BESYLATE
     Indication: Product used for unknown indication
     Dosage: 60 TO 80 TABLETS
     Route: 048

REACTIONS (10)
  - Intentional overdose [Fatal]
  - Completed suicide [Fatal]
  - Vasoplegia syndrome [Fatal]
  - Blood pressure fluctuation [Fatal]
  - Blood electrolytes decreased [Fatal]
  - Vomiting [Fatal]
  - Lethargy [Fatal]
  - Hypervolaemia [Fatal]
  - Abdominal distension [Fatal]
  - Drug level increased [Fatal]

NARRATIVE: CASE EVENT DATE: 20210101
